FAERS Safety Report 6552718-2 (Version None)
Quarter: 2010Q1

REPORT INFORMATION
  Report Type: 
  Country: None (occurrence: None)
  Receive Date: 20100126
  Receipt Date: 20100114
  Transmission Date: 20100710
  Serious: Yes (Hospitalization, Other)
  Sender: FDA-Public Use
  Company Number: FR-ELI_LILLY_AND_COMPANY-FR201001002782

PATIENT
  Age: 66 Year
  Sex: Female

DRUGS (9)
  1. FORTEO [Suspect]
     Indication: OSTEOPOROSIS
     Dosage: 20 UG, DAILY (1/D)
     Route: 065
  2. LEVOTHYROXINE SODIUM [Concomitant]
     Dosage: 125 UG, DAILY (1/D)
  3. PARIET [Concomitant]
     Indication: GASTROOESOPHAGEAL REFLUX DISEASE
     Dosage: 1 D/F, DAILY (1/D)
  4. GAVISCON /GFR/ [Concomitant]
     Indication: GASTROOESOPHAGEAL REFLUX DISEASE
     Dosage: 4 D/F, DAILY (1/D)
  5. STRUCTUM [Concomitant]
     Indication: MUSCULOSKELETAL PAIN
     Dosage: 2 D/F, DAILY (1/D)
  6. COLPRONE TAB [Concomitant]
     Indication: MENOPAUSE
     Dosage: 1 D/F, DAILY (1/D)
  7. AMLODIPINE [Concomitant]
     Dosage: 5 MG, UNK
  8. CALCIT-S [Concomitant]
     Indication: OSTEOPOROSIS
     Dosage: 1000 MG, DAILY (1/D)
  9. DOMPERIDONE [Concomitant]
     Indication: GASTROOESOPHAGEAL REFLUX DISEASE

REACTIONS (4)
  - ARTHRALGIA [None]
  - CYST [None]
  - GROIN PAIN [None]
  - STRESS URINARY INCONTINENCE [None]
